FAERS Safety Report 10065478 (Version 1)
Quarter: 2014Q2

REPORT INFORMATION
  Report Type: Spontaneous
  Country: US (occurrence: US)
  Receive Date: 20140408
  Receipt Date: 20140408
  Transmission Date: 20141212
  Serious: No
  Sender: FDA-Public Use
  Company Number: PHEH2014US006648

PATIENT
  Sex: Female

DRUGS (1)
  1. TASIGNA [Suspect]
     Dosage: 300 MG, BID (02 DF, BID)

REACTIONS (3)
  - Heart rate increased [Unknown]
  - Diarrhoea [Unknown]
  - Incorrect dose administered [Unknown]
